FAERS Safety Report 9232177 (Version 1)
Quarter: 2013Q2

REPORT INFORMATION
  Report Type: Spontaneous
  Country: DE (occurrence: DE)
  Receive Date: 20130415
  Receipt Date: 20130415
  Transmission Date: 20140414
  Serious: Yes (Other)
  Sender: FDA-Public Use
  Company Number: DE-009507513-1304DEU003773

PATIENT
  Sex: Female

DRUGS (1)
  1. NUVARING [Suspect]
     Indication: CONTRACEPTION
     Route: 067

REACTIONS (6)
  - Ligament rupture [Unknown]
  - Meniscus injury [Unknown]
  - Oropharyngeal pain [Unknown]
  - Abnormal withdrawal bleeding [Unknown]
  - Knee operation [Unknown]
  - Accident [Unknown]
